FAERS Safety Report 6583064-9 (Version None)
Quarter: 2010Q1

REPORT INFORMATION
  Report Type: 
  Country: None (occurrence: None)
  Receive Date: 20100125
  Receipt Date: 20091204
  Transmission Date: 20100710
  Serious: Yes (Hospitalization)
  Sender: FDA-Public Use
  Company Number: 2009BI034452

PATIENT
  Age: 60 Year
  Sex: Female

DRUGS (3)
  1. TYSABRI [Suspect]
     Indication: MULTIPLE SCLEROSIS
     Dosage: 300 MG;QM;IV
     Route: 042
     Dates: start: 20070501
  2. CON MEDS [Concomitant]
  3. PREV MEDS [Concomitant]

REACTIONS (12)
  - BACK PAIN [None]
  - CHROMATURIA [None]
  - CONSTIPATION [None]
  - COORDINATION ABNORMAL [None]
  - FALL [None]
  - GROIN PAIN [None]
  - HAEMORRHAGE URINARY TRACT [None]
  - INSOMNIA [None]
  - JOINT INJURY [None]
  - NAUSEA [None]
  - URINARY TRACT INFECTION [None]
  - VAGINAL HAEMORRHAGE [None]
